FAERS Safety Report 7442732-7 (Version None)
Quarter: 2011Q2

REPORT INFORMATION
  Report Type: 
  Country: None (occurrence: None)
  Receive Date: 20110428
  Receipt Date: 20110415
  Transmission Date: 20111010
  Serious: Yes (Other)
  Sender: FDA-Public Use
  Company Number: FI-JNJFOC-20110406457

PATIENT
  Age: 54 Year
  Sex: Male

DRUGS (6)
  1. ZYPREXA [Suspect]
     Route: 065
  2. ZYPREXA [Suspect]
     Indication: SCHIZOPHRENIA
     Route: 065
  3. RISPERDAL [Suspect]
     Route: 065
  4. RISPERIDONE [Suspect]
     Route: 065
  5. RISPERIDONE [Suspect]
     Indication: SCHIZOPHRENIA
     Route: 065
  6. RISPERDAL [Suspect]
     Indication: SCHIZOPHRENIA
     Route: 065

REACTIONS (1)
  - HYPONATRAEMIA [None]
